FAERS Safety Report 21760543 (Version 2)
Quarter: 2022Q4

REPORT INFORMATION
  Report Type: Spontaneous
  Country: IT (occurrence: IT)
  Receive Date: 20221221
  Receipt Date: 20221230
  Transmission Date: 20230113
  Serious: Yes (Death, Hospitalization, Other)
  Sender: FDA-Public Use
  Company Number: IT-BIOVITRUM-2022IT15183

PATIENT
  Age: 2 Month
  Sex: Male

DRUGS (29)
  1. GAMIFANT [Suspect]
     Active Substance: EMAPALUMAB-LZSG
     Indication: Product used for unknown indication
     Dosage: PATIENT GLOBALLY RECEIVED 6 INFUSIONS (DOSE 3 MG/KG, TWO TIMES PER WEEK)
     Dates: start: 20221110, end: 20221128
  2. ANAKINRA [Suspect]
     Active Substance: ANAKINRA
     Indication: Familial haemophagocytic lymphohistiocytosis
     Dates: start: 20221004, end: 20221027
  3. DEXAMETHASONE [Suspect]
     Active Substance: DEXAMETHASONE
     Indication: Product used for unknown indication
     Dosage: 10 MG/MQ/DAY (3 MG INTO 2/DAY)?TAPERING UNTIL 04/DEC/22 WHEN THE DOSE WAS RE ADJUSTED TO 10 MG/MQ/DA
     Dates: start: 20220809, end: 20220818
  4. RUXOLITINIB [Concomitant]
     Active Substance: RUXOLITINIB
     Dosage: PER OS 2/ DAY (10.00 22.00)
     Dates: start: 20220922, end: 20221216
  5. CYCLOSPORINE [Concomitant]
     Active Substance: CYCLOSPORINE
     Dates: start: 20220809, end: 20221004
  6. LEVETIRACETAM [Concomitant]
     Active Substance: LEVETIRACETAM
     Dates: start: 20221003, end: 20221216
  7. LACOSAMIDE [Concomitant]
     Active Substance: LACOSAMIDE
     Dates: start: 20221004, end: 20221216
  8. CLONAZEPAM [Concomitant]
     Active Substance: CLONAZEPAM
     Dosage: 5 DROPS
     Dates: start: 20221004, end: 20221216
  9. MIDAZOLAM [Concomitant]
     Active Substance: MIDAZOLAM
     Dates: start: 20221004, end: 20221214
  10. ESOMEPRAZOLE [Concomitant]
     Active Substance: ESOMEPRAZOLE
     Dates: start: 20220809, end: 20221216
  11. CASPOFUNGIN [Concomitant]
     Active Substance: CASPOFUNGIN
     Dates: start: 20220930, end: 20221216
  12. AMPHOTERICIN B [Concomitant]
     Active Substance: AMPHOTERICIN B
     Dosage: EVERY OTHER DAY
     Dates: start: 20220809, end: 20220929
  13. DAPTOMICIN [Concomitant]
     Dates: start: 20221102, end: 20221216
  14. MEROPENEM [Concomitant]
     Active Substance: MEROPENEM
     Dates: start: 20220809, end: 20220821
  15. MEROPENEM [Concomitant]
     Active Substance: MEROPENEM
     Dates: start: 20221003, end: 20221117
  16. PIPERACILLIN SODIUM\TAZOBACTAM SODIUM [Concomitant]
     Active Substance: PIPERACILLIN SODIUM\TAZOBACTAM SODIUM
     Dates: start: 20220822, end: 20221004
  17. PIPERACILLIN SODIUM\TAZOBACTAM SODIUM [Concomitant]
     Active Substance: PIPERACILLIN SODIUM\TAZOBACTAM SODIUM
     Dates: start: 20221118, end: 20221216
  18. AMIKACIN [Concomitant]
     Active Substance: AMIKACIN
     Dates: start: 20221004, end: 20221012
  19. AMIKACIN [Concomitant]
     Active Substance: AMIKACIN
     Dates: start: 20221018, end: 20221031
  20. TIGECYCLINE [Concomitant]
     Active Substance: TIGECYCLINE
     Dates: start: 20221003, end: 20221014
  21. TIGECYCLINE [Concomitant]
     Active Substance: TIGECYCLINE
     Dates: start: 20221017, end: 20221031
  22. TIGECYCLINE [Concomitant]
     Active Substance: TIGECYCLINE
     Dates: start: 20221110, end: 20221116
  23. TIGECYCLINE [Concomitant]
     Active Substance: TIGECYCLINE
     Dates: start: 20221207, end: 20221213
  24. FOSFOMYCIN [Concomitant]
     Active Substance: FOSFOMYCIN
     Dates: start: 20221003, end: 20221103
  25. AVIBACTAM SODIUM\CEFTAZIDIME [Concomitant]
     Active Substance: AVIBACTAM SODIUM\CEFTAZIDIME
     Dates: start: 20221018, end: 20221031
  26. ACYCLOVIR [Concomitant]
     Active Substance: ACYCLOVIR
     Dates: start: 20220809, end: 20221216
  27. BACTRIM [Concomitant]
     Active Substance: SULFAMETHOXAZOLE\TRIMETHOPRIM
     Dosage: 2 PER DAY FOR 3 DAYS
     Dates: start: 20220809, end: 20221216
  28. AMLODIPINE BESYLATE [Concomitant]
     Active Substance: AMLODIPINE BESYLATE
     Dates: start: 20220809, end: 20221211
  29. RAMIPRIL [Concomitant]
     Active Substance: RAMIPRIL
     Dates: start: 20220809, end: 20221211

REACTIONS (6)
  - Generalised tonic-clonic seizure [Fatal]
  - Nervous system disorder [Fatal]
  - Bacterial sepsis [Fatal]
  - Hypotension [Fatal]
  - Brain death [Fatal]
  - Off label use [Unknown]

NARRATIVE: CASE EVENT DATE: 20221008
